FAERS Safety Report 7628455-X (Version None)
Quarter: 2011Q3

REPORT INFORMATION
  Report Type: 
  Country: None (occurrence: None)
  Receive Date: 20110705
  Receipt Date: 20110621
  Transmission Date: 20111222
  Serious: Yes (Other)
  Sender: FDA-Public Use
  Company Number: 003-052(0)

PATIENT
  Sex: Male

DRUGS (2)
  1. CROFAB [Suspect]
  2. CROFAB [Suspect]
     Indication: SNAKE BITE
     Dosage: 6 VIALS, LOADING DOSE
     Dates: start: 20110620

REACTIONS (7)
  - ABDOMINAL PAIN [None]
  - BLOOD UREA INCREASED [None]
  - HYPOTENSION [None]
  - HAEMATOCRIT INCREASED [None]
  - HEART RATE DECREASED [None]
  - PLATELET COUNT DECREASED [None]
  - HYPERHIDROSIS [None]
